FAERS Safety Report 6974001-3 (Version None)
Quarter: 2010Q3

REPORT INFORMATION
  Report Type: 
  Country: None (occurrence: None)
  Receive Date: 20100909
  Receipt Date: 20100903
  Transmission Date: 20110219
  Serious: Yes (Hospitalization)
  Sender: FDA-Public Use
  Company Number: US-GILEAD-2010-0031668

PATIENT
  Age: 74 Year
  Sex: Male
  Weight: 103.06 kg

DRUGS (13)
  1. LETAIRIS [Suspect]
     Indication: PULMONARY ARTERIAL HYPERTENSION
     Route: 048
     Dates: start: 20090408
  2. LASIX [Concomitant]
  3. ALDACTONE [Concomitant]
  4. COUMADIN [Concomitant]
  5. IMDUR [Concomitant]
  6. LOPRESSOR [Concomitant]
  7. COZAAR [Concomitant]
  8. SYMBICORT [Concomitant]
  9. SPIRIVA [Concomitant]
  10. LANTUS [Concomitant]
  11. ZYRTEC [Concomitant]
  12. CETRIZINE [Concomitant]
  13. ALLOPURINOL [Concomitant]

REACTIONS (2)
  - PERICARDIAL EFFUSION [None]
  - PLEURAL EFFUSION [None]
